FAERS Safety Report 12471896 (Version 3)
Quarter: 2016Q3

REPORT INFORMATION
  Report Type: Report from Study
  Country: US (occurrence: US)
  Receive Date: 20160616
  Receipt Date: 20160719
  Transmission Date: 20161109
  Serious: Yes (Hospitalization)
  Sender: FDA-Public Use
  Company Number: US-PFIZER INC-2016295982

PATIENT
  Age: 60 Year
  Sex: Male
  Weight: 130.1 kg

DRUGS (24)
  1. ACYCLOVIR /00587301/ [Concomitant]
     Active Substance: ACYCLOVIR
     Dosage: UNK
     Dates: start: 20141112
  2. AMLODIPINE [Concomitant]
     Active Substance: AMLODIPINE BESYLATE
     Dosage: UNK
  3. FUROSEMIDE. [Concomitant]
     Active Substance: FUROSEMIDE
     Dosage: UNK
  4. DOCUSATE [Concomitant]
     Active Substance: DOCUSATE
     Dosage: UNK
  5. CYMBALTA [Concomitant]
     Active Substance: DULOXETINE HYDROCHLORIDE
     Dosage: UNK
     Dates: start: 20141112
  6. EMTRICITABINE/RILPIVIRINE/TENOFOVIR [Suspect]
     Active Substance: EMTRICITABINE\RILPIVIRINE\TENOFOVIR DISOPROXIL FUMARATE
     Indication: HIV INFECTION
     Dosage: TABLET, 1 DF, QD
     Route: 048
     Dates: start: 20150807, end: 20160414
  7. ACETAMINOPHEN. [Concomitant]
     Active Substance: ACETAMINOPHEN
     Dosage: UNK
  8. FLUOXETINE [Concomitant]
     Active Substance: FLUOXETINE HYDROCHLORIDE
     Dosage: UNK
  9. METHADONE [Concomitant]
     Active Substance: METHADONE HYDROCHLORIDE
     Dosage: UNK
     Dates: start: 20141112
  10. VITAMIN D /00107901/ [Concomitant]
     Active Substance: ERGOCALCIFEROL
     Dosage: UNK
     Dates: start: 2013
  11. PLACEBO [Suspect]
     Active Substance: UNSPECIFIED INGREDIENT
     Indication: HIV INFECTION
     Dosage: 1 DF, QD
     Route: 048
     Dates: start: 20150807, end: 20160414
  12. VICODIN [Concomitant]
     Active Substance: ACETAMINOPHEN\HYDROCODONE BITARTRATE
     Dosage: UNK
  13. VITAMIN B [Concomitant]
     Active Substance: VITAMIN B
     Dosage: UNK
     Dates: start: 2013
  14. XANAX [Suspect]
     Active Substance: ALPRAZOLAM
     Indication: ANXIETY
     Dosage: 2 MG, QID
     Route: 048
     Dates: start: 20160401
  15. ARIPIPRAZOLE. [Concomitant]
     Active Substance: ARIPIPRAZOLE
     Dosage: UNK
  16. ADVAIR HFA [Concomitant]
     Active Substance: FLUTICASONE PROPIONATE\SALMETEROL XINAFOATE
     Dosage: UNK
     Dates: start: 20150722
  17. NICOTINE. [Concomitant]
     Active Substance: NICOTINE
     Dosage: UNK
  18. MIRTAZAPINE. [Concomitant]
     Active Substance: MIRTAZAPINE
     Dosage: UNK
  19. ROPINIROLE. [Concomitant]
     Active Substance: ROPINIROLE
     Dosage: UNK
  20. CLONIDINE. [Concomitant]
     Active Substance: CLONIDINE
     Dosage: UNK
     Dates: start: 20141112
  21. NAPROXEN. [Concomitant]
     Active Substance: NAPROXEN
     Dosage: UNK
     Dates: start: 20141112
  22. ASPIRIN /00002701/ [Concomitant]
     Active Substance: ASPIRIN
     Dosage: UNK
     Dates: start: 2014
  23. PROZAC [Concomitant]
     Active Substance: FLUOXETINE HYDROCHLORIDE
     Dosage: UNK
  24. HYDROCHLOROTHIAZIDE. [Concomitant]
     Active Substance: HYDROCHLOROTHIAZIDE
     Dosage: UNK
     Dates: start: 20150909

REACTIONS (21)
  - Chest pain [None]
  - Fibrin D dimer increased [None]
  - Haemangioma of bone [None]
  - Polydipsia psychogenic [None]
  - Blood pressure diastolic increased [None]
  - Mitral valve sclerosis [None]
  - Haemoglobin decreased [None]
  - Osteosclerosis [None]
  - Erythema [None]
  - Hepatic steatosis [None]
  - Mitral valve incompetence [None]
  - Haematocrit decreased [None]
  - Generalised oedema [Recovered/Resolved]
  - Left atrial dilatation [None]
  - Malignant neoplasm of spinal cord [None]
  - Dyspnoea exertional [None]
  - Rales [None]
  - Wheezing [None]
  - Tricuspid valve incompetence [None]
  - Poor personal hygiene [None]
  - Left ventricular hypertrophy [None]

NARRATIVE: CASE EVENT DATE: 20160511
